FAERS Safety Report 5162462-4 (Version None)
Quarter: 2006Q4

REPORT INFORMATION
  Report Type: 
  Country: None (occurrence: None)
  Receive Date: 20061129
  Receipt Date: 20061129
  Transmission Date: 20070319
  Serious: Yes (Hospitalization)
  Sender: FDA-Public Use
  Company Number: None

PATIENT
  Age: 55 Year
  Sex: Female

DRUGS (3)
  1. DAPSONE [Suspect]
     Dosage: 100 MG DAILY OPHTHALMIC
     Route: 047
     Dates: start: 20031203, end: 20040130
  2. ATOVAQUONE [Concomitant]
  3. AZITHROMYCIN [Concomitant]

REACTIONS (1)
  - METHAEMOGLOBINAEMIA [None]
